FAERS Safety Report 7717233-9 (Version None)
Quarter: 2011Q3

REPORT INFORMATION
  Report Type: 
  Country: None (occurrence: None)
  Receive Date: 20110826
  Receipt Date: 20110826
  Transmission Date: 20111222
  Serious: Yes (Hospitalization)
  Sender: FDA-Public Use
  Company Number: None

PATIENT
  Age: 60 Year
  Sex: Male
  Weight: 113 kg

DRUGS (2)
  1. FUROSEMIDE [Suspect]
     Indication: CARDIAC FAILURE CONGESTIVE
     Dosage: 40 MG EVERY DAY PO
     Route: 048
     Dates: start: 19980301
  2. VALPROIC ACID [Suspect]
     Indication: SCHIZOAFFECTIVE DISORDER
     Dosage: 2500 MG BID PO
     Route: 048
     Dates: start: 20100401

REACTIONS (1)
  - PANCREATITIS ACUTE [None]
